FAERS Safety Report 15466271 (Version 2)
Quarter: 2018Q4

REPORT INFORMATION
  Report Type: Spontaneous
  Country: ZA (occurrence: ZA)
  Receive Date: 20181004
  Receipt Date: 20181019
  Transmission Date: 20190204
  Serious: Yes (Hospitalization)
  Sender: FDA-Public Use
  Company Number: ZA-ASCEND THERAPEUTICS-2055700

PATIENT
  Sex: Female

DRUGS (6)
  1. EUTHYROX [Suspect]
     Active Substance: LEVOTHYROXINE SODIUM
  2. ESTROGEL [Suspect]
     Active Substance: ESTRADIOL
     Indication: PRODUCT USED FOR UNKNOWN INDICATION
  3. ELTROXIN (LEVOTHYROXINE SODIUM) [Suspect]
     Active Substance: LEVOTHYROXINE
  4. TRUSTAN (ESOMEPRAZOLE MAGNESIUM) [Suspect]
     Active Substance: ESOMEPRAZOLE
  5. PREMARIN [Suspect]
     Active Substance: ESTROGENS, CONJUGATED
  6. DORMONOCT [Suspect]
     Active Substance: LOPRAZOLAM

REACTIONS (1)
  - Meniscus injury [Unknown]
